FAERS Safety Report 6545159-5 (Version None)
Quarter: 2010Q1

REPORT INFORMATION
  Report Type: 
  Country: None (occurrence: None)
  Receive Date: 20100121
  Receipt Date: 20100120
  Transmission Date: 20100710
  Serious: Yes (Hospitalization)
  Sender: FDA-Public Use
  Company Number: IT-BRISTOL-MYERS SQUIBB COMPANY-14940001

PATIENT
  Age: 78 Year
  Sex: Female

DRUGS (4)
  1. COUMADIN [Suspect]
     Indication: PROPHYLAXIS
     Dosage: INTERRUPTED ON 21OCT09
     Route: 048
     Dates: start: 20040101
  2. JUMEX [Concomitant]
     Indication: PARKINSONISM
     Dosage: JUMEX 5MG ORAL TABS.
     Route: 048
  3. MADOPAR [Concomitant]
     Indication: PARKINSONISM
  4. ENAPREN [Concomitant]
     Indication: HYPERTENSION
     Dosage: ENAPREN 5MG TABS.
     Route: 048

REACTIONS (4)
  - ANAEMIA [None]
  - CEREBRAL HAEMORRHAGE [None]
  - PNEUMONIA STAPHYLOCOCCAL [None]
  - URINARY TRACT INFECTION [None]
